FAERS Safety Report 5700295-8 (Version None)
Quarter: 2008Q2

REPORT INFORMATION
  Report Type: 
  Country: None (occurrence: None)
  Receive Date: 20080410
  Receipt Date: 20080402
  Transmission Date: 20081010
  Serious: Yes (Death, Life-Threatening)
  Sender: FDA-Public Use
  Company Number: A0718936A

PATIENT
  Sex: Male

DRUGS (4)
  1. LAMICTAL [Suspect]
     Indication: BIPOLAR DISORDER
     Route: 048
     Dates: start: 20060101
  2. NORTRIPTYLINE HCL [Suspect]
  3. PROZAC [Suspect]
  4. CLOMIPRAMINE HCL [Suspect]

REACTIONS (1)
  - OVERDOSE [None]
